FAERS Safety Report 25255484 (Version 1)
Quarter: 2025Q2

REPORT INFORMATION
  Report Type: Spontaneous
  Country: AU (occurrence: AU)
  Receive Date: 20250430
  Receipt Date: 20250430
  Transmission Date: 20250717
  Serious: Yes (Hospitalization)
  Sender: MYLAN
  Company Number: AU-MYLANLABS-2025M1036911

PATIENT
  Age: 44 Year
  Sex: Male
  Weight: 85 kg

DRUGS (48)
  1. FENTANYL [Suspect]
     Active Substance: FENTANYL
     Indication: Induction of anaesthesia
  2. FENTANYL [Suspect]
     Active Substance: FENTANYL
     Route: 065
  3. FENTANYL [Suspect]
     Active Substance: FENTANYL
     Route: 065
  4. FENTANYL [Suspect]
     Active Substance: FENTANYL
  5. VECURONIUM [Suspect]
     Active Substance: VECURONIUM BROMIDE
     Indication: Muscle relaxant therapy
  6. VECURONIUM [Suspect]
     Active Substance: VECURONIUM BROMIDE
     Route: 065
  7. VECURONIUM [Suspect]
     Active Substance: VECURONIUM BROMIDE
     Route: 065
  8. VECURONIUM [Suspect]
     Active Substance: VECURONIUM BROMIDE
  9. SUGAMMADEX [Suspect]
     Active Substance: SUGAMMADEX
     Indication: Muscle relaxant therapy
  10. SUGAMMADEX [Suspect]
     Active Substance: SUGAMMADEX
     Route: 065
  11. SUGAMMADEX [Suspect]
     Active Substance: SUGAMMADEX
     Route: 065
  12. SUGAMMADEX [Suspect]
     Active Substance: SUGAMMADEX
  13. ALFENTANIL HYDROCHLORIDE [Suspect]
     Active Substance: ALFENTANIL HYDROCHLORIDE
     Indication: Induction of anaesthesia
  14. ALFENTANIL HYDROCHLORIDE [Suspect]
     Active Substance: ALFENTANIL HYDROCHLORIDE
     Route: 065
  15. ALFENTANIL HYDROCHLORIDE [Suspect]
     Active Substance: ALFENTANIL HYDROCHLORIDE
     Route: 065
  16. ALFENTANIL HYDROCHLORIDE [Suspect]
     Active Substance: ALFENTANIL HYDROCHLORIDE
  17. PROPOFOL [Suspect]
     Active Substance: PROPOFOL
     Indication: Induction of anaesthesia
  18. PROPOFOL [Suspect]
     Active Substance: PROPOFOL
     Route: 065
  19. PROPOFOL [Suspect]
     Active Substance: PROPOFOL
     Route: 065
  20. PROPOFOL [Suspect]
     Active Substance: PROPOFOL
  21. THIOPENTAL [Suspect]
     Active Substance: THIOPENTAL
     Indication: Induction of anaesthesia
  22. THIOPENTAL [Suspect]
     Active Substance: THIOPENTAL
     Route: 065
  23. THIOPENTAL [Suspect]
     Active Substance: THIOPENTAL
     Route: 065
  24. THIOPENTAL [Suspect]
     Active Substance: THIOPENTAL
  25. SEVOFLURANE [Suspect]
     Active Substance: SEVOFLURANE
     Indication: Induction of anaesthesia
  26. SEVOFLURANE [Suspect]
     Active Substance: SEVOFLURANE
     Route: 065
  27. SEVOFLURANE [Suspect]
     Active Substance: SEVOFLURANE
     Route: 065
  28. SEVOFLURANE [Suspect]
     Active Substance: SEVOFLURANE
  29. ROPIVACAINE [Suspect]
     Active Substance: ROPIVACAINE
     Indication: Induction of anaesthesia
  30. ROPIVACAINE [Suspect]
     Active Substance: ROPIVACAINE
     Route: 065
  31. ROPIVACAINE [Suspect]
     Active Substance: ROPIVACAINE
     Route: 065
  32. ROPIVACAINE [Suspect]
     Active Substance: ROPIVACAINE
  33. ONDANSETRON [Concomitant]
     Active Substance: ONDANSETRON
     Indication: Product used for unknown indication
  34. ONDANSETRON [Concomitant]
     Active Substance: ONDANSETRON
     Route: 065
  35. ONDANSETRON [Concomitant]
     Active Substance: ONDANSETRON
     Route: 065
  36. ONDANSETRON [Concomitant]
     Active Substance: ONDANSETRON
  37. PARECOXIB [Concomitant]
     Active Substance: PARECOXIB
     Indication: Product used for unknown indication
  38. PARECOXIB [Concomitant]
     Active Substance: PARECOXIB
     Route: 065
  39. PARECOXIB [Concomitant]
     Active Substance: PARECOXIB
     Route: 065
  40. PARECOXIB [Concomitant]
     Active Substance: PARECOXIB
  41. ACETAMINOPHEN [Concomitant]
     Active Substance: ACETAMINOPHEN
     Indication: Product used for unknown indication
  42. ACETAMINOPHEN [Concomitant]
     Active Substance: ACETAMINOPHEN
     Route: 065
  43. ACETAMINOPHEN [Concomitant]
     Active Substance: ACETAMINOPHEN
     Route: 065
  44. ACETAMINOPHEN [Concomitant]
     Active Substance: ACETAMINOPHEN
  45. DEXAMETHASONE [Concomitant]
     Active Substance: DEXAMETHASONE
     Indication: Product used for unknown indication
  46. DEXAMETHASONE [Concomitant]
     Active Substance: DEXAMETHASONE
     Route: 065
  47. DEXAMETHASONE [Concomitant]
     Active Substance: DEXAMETHASONE
     Route: 065
  48. DEXAMETHASONE [Concomitant]
     Active Substance: DEXAMETHASONE

REACTIONS (1)
  - Delayed recovery from anaesthesia [Recovered/Resolved]
